FAERS Safety Report 11492786 (Version 3)
Quarter: 2016Q1

REPORT INFORMATION
  Report Type: Spontaneous
  Country: US (occurrence: US)
  Receive Date: 20150911
  Receipt Date: 20160101
  Transmission Date: 20160525
  Serious: Yes (Hospitalization)
  Sender: FDA-Public Use
  Company Number: US-ROCHE-ITM201503IM011397

PATIENT
  Sex: Male
  Weight: 68.55 kg

DRUGS (3)
  1. ESBRIET [Suspect]
     Active Substance: PIRFENIDONE
     Indication: IDIOPATHIC PULMONARY FIBROSIS
     Route: 048
     Dates: start: 20150206
  2. ESBRIET [Suspect]
     Active Substance: PIRFENIDONE
     Route: 048
     Dates: start: 20150209
  3. ASPIRIN. [Concomitant]
     Active Substance: ASPIRIN

REACTIONS (10)
  - Cough [Unknown]
  - Decreased appetite [Unknown]
  - Dyspnoea [Unknown]
  - Chest pain [Unknown]
  - Infrequent bowel movements [Unknown]
  - Faeces hard [Unknown]
  - Lung infection [Unknown]
  - Chest discomfort [Unknown]
  - Malaise [Unknown]
  - Respiratory tract infection [Unknown]
